FAERS Safety Report 13007327 (Version 1)
Quarter: 2016Q4

REPORT INFORMATION
  Report Type: Spontaneous
  Country: US (occurrence: US)
  Receive Date: 20161207
  Receipt Date: 20161207
  Transmission Date: 20170207
  Serious: Yes (Other)
  Sender: FDA-Public Use
  Company Number: US-BAYER-2016-226423

PATIENT
  Age: 44 Year
  Sex: Female

DRUGS (3)
  1. ACETYLSALICYLIC ACID (} 100 MG) [Suspect]
     Active Substance: ASPIRIN
     Dosage: 2 DF, QD
  2. ACETYLSALICYLIC ACID (} 100 MG) [Suspect]
     Active Substance: ASPIRIN
     Dosage: 2 DF, QD
  3. OMEPRAZOLE. [Suspect]
     Active Substance: OMEPRAZOLE
     Dosage: 40 MG, QD

REACTIONS (10)
  - Aspirin-exacerbated respiratory disease [None]
  - Dyspepsia [None]
  - Chest discomfort [None]
  - Asthma [None]
  - Anosmia [None]
  - Abdominal pain upper [None]
  - Eosinophilia [None]
  - Eosinophilic oesophagitis [None]
  - Dysphagia [None]
  - Chronic sinusitis [None]
